FAERS Safety Report 16232189 (Version 3)
Quarter: 2019Q2

REPORT INFORMATION
  Report Type: Report from Study
  Country: CA (occurrence: CA)
  Receive Date: 20190424
  Receipt Date: 20190520
  Transmission Date: 20190711
  Serious: Yes (Other)
  Sender: FDA-Public Use
  Company Number: PHHY2019CA082198

PATIENT
  Sex: Female

DRUGS (6)
  1. METOPROLOL. [Suspect]
     Active Substance: METOPROLOL
     Indication: MIGRAINE
     Dosage: UNK
     Route: 065
     Dates: start: 2000, end: 2005
  2. AMITRIPTYLINE [Concomitant]
     Active Substance: AMITRIPTYLINE
     Indication: PRODUCT USED FOR UNKNOWN INDICATION
     Dosage: 20 MG, QHS
     Route: 065
     Dates: start: 2006, end: 2012
  3. GABAPENTIN. [Concomitant]
     Active Substance: GABAPENTIN
     Indication: PRODUCT USED FOR UNKNOWN INDICATION
     Dosage: 900 MG, UNK
     Route: 065
     Dates: start: 2012, end: 2014
  4. PROPRANOLOL [Suspect]
     Active Substance: PROPRANOLOL HYDROCHLORIDE
     Indication: MIGRAINE PROPHYLAXIS
     Dosage: UNK
     Route: 048
     Dates: start: 201510
  5. PROPRANOLOL [Suspect]
     Active Substance: PROPRANOLOL HYDROCHLORIDE
     Dosage: 20 MG, BID
     Route: 048
     Dates: start: 20181002, end: 20190301
  6. PREGABALIN. [Suspect]
     Active Substance: PREGABALIN
     Indication: MIGRAINE
     Dosage: UNK
     Route: 065
     Dates: start: 201501, end: 201810

REACTIONS (8)
  - Syncope [Recovered/Resolved]
  - Facial paralysis [Unknown]
  - Hypoaesthesia [Unknown]
  - Nausea [Unknown]
  - Blood pressure decreased [Recovered/Resolved]
  - Vomiting [Unknown]
  - Chondromalacia [Unknown]
  - Mobility decreased [Unknown]
